FAERS Safety Report 12876607 (Version 1)
Quarter: 2016Q4

REPORT INFORMATION
  Report Type: Spontaneous
  Country: ZA (occurrence: ZA)
  Receive Date: 20161024
  Receipt Date: 20161024
  Transmission Date: 20170207
  Serious: Yes (Other)
  Sender: FDA-Public Use
  Company Number: ZA-PFIZER INC-2016486268

PATIENT
  Sex: Male

DRUGS (4)
  1. LIPITOR [Suspect]
     Active Substance: ATORVASTATIN CALCIUM
  2. ASPIRIN CARDIO [Concomitant]
     Active Substance: ASPIRIN
     Dosage: UNK UNK, 1X/DAY
  3. PURICOS [Concomitant]
     Active Substance: ALLOPURINOL
     Dosage: UNK UNK, 1X/DAY
  4. ASPAVOR [Suspect]
     Active Substance: ATORVASTATIN
     Dosage: UNK UNK, 1X/DAY

REACTIONS (12)
  - Iron deficiency [Unknown]
  - Liver disorder [Unknown]
  - Tinnitus [Unknown]
  - Thrombosis [Unknown]
  - Anaemia [Unknown]
  - Insomnia [Unknown]
  - Jaundice cholestatic [Unknown]
  - Muscle spasms [Unknown]
  - Hepatic neoplasm [Unknown]
  - Dizziness [Unknown]
  - Yellow skin [Unknown]
  - Constipation [Unknown]
